FAERS Safety Report 20920189 (Version 2)
Quarter: 2022Q2

REPORT INFORMATION
  Report Type: Spontaneous
  Country: US (occurrence: US)
  Receive Date: 20220606
  Receipt Date: 20220607
  Transmission Date: 20220721
  Serious: No
  Sender: FDA-Public Use
  Company Number: US-PFIZER INC-202200793369

PATIENT
  Age: 40 Year
  Sex: Male
  Weight: 104.33 kg

DRUGS (1)
  1. PAXLOVID [Suspect]
     Active Substance: NIRMATRELVIR\RITONAVIR
     Indication: COVID-19 treatment
     Dosage: 3 DF, 2X/DAY [THREE TABLETS ONCE IN MORNING AND ONCE IN EVENING]
     Dates: start: 20220601, end: 202206

REACTIONS (10)
  - Dysgeusia [Unknown]
  - Product taste abnormal [Not Recovered/Not Resolved]
  - Feeling abnormal [Not Recovered/Not Resolved]
  - Dizziness [Not Recovered/Not Resolved]
  - Vision blurred [Not Recovered/Not Resolved]
  - Heart rate decreased [Unknown]
  - Throat irritation [Unknown]
  - Pyrexia [Recovered/Resolved]
  - Strabismus [Unknown]
  - Sensation of foreign body [Unknown]

NARRATIVE: CASE EVENT DATE: 20220601
